FAERS Safety Report 7649496-2 (Version None)
Quarter: 2011Q3

REPORT INFORMATION
  Report Type: 
  Country: None (occurrence: None)
  Receive Date: 20110802
  Receipt Date: 20101115
  Transmission Date: 20111222
  Serious: No
  Sender: FDA-Public Use
  Company Number: US-BAYER-201041520NA

PATIENT
  Sex: Female

DRUGS (3)
  1. MIRENA [Suspect]
     Indication: MENOPAUSE
     Dosage: 20 ?G/D, CONT
     Route: 015
  2. MIRENA [Suspect]
     Indication: MENSTRUAL CYCLE MANAGEMENT
  3. MIRENA [Suspect]
     Indication: ABDOMINAL PAIN LOWER

REACTIONS (2)
  - POST PROCEDURAL HAEMORRHAGE [None]
  - ABDOMINAL PAIN LOWER [None]
